FAERS Safety Report 4550739-2 (Version None)
Quarter: 2004Q4

REPORT INFORMATION
  Report Type: 
  Country: None (occurrence: None)
  Receive Date: 20041217
  Receipt Date: 20040923
  Transmission Date: 20050328
  Serious: No
  Sender: FDA-Public Use
  Company Number: 2004-BP-08669BP

PATIENT
  Age: 82 Year
  Sex: Male

DRUGS (8)
  1. SPIRIVA [Suspect]
     Indication: CHRONIC OBSTRUCTIVE AIRWAYS DISEASE
     Dosage: 18 MCG (18 MCG QD IH)
     Route: 055
     Dates: start: 20040817
  2. ALBUTEROL [Concomitant]
  3. FLOVENT [Concomitant]
  4. FORADIL [Concomitant]
  5. SINGULAIR (MONTELEUKAST) [Concomitant]
  6. LEVOXYL [Concomitant]
  7. LISINOPRIL [Concomitant]
  8. SPIRIVA [Suspect]

REACTIONS (2)
  - DRUG INEFFECTIVE [None]
  - THERAPEUTIC RESPONSE DECREASED [None]
